FAERS Safety Report 4480037-7 (Version None)
Quarter: 2004Q4

REPORT INFORMATION
  Report Type: 
  Country: None (occurrence: None)
  Receive Date: 20041018
  Receipt Date: 20041005
  Transmission Date: 20050328
  Serious: Yes (Hospitalization, Other)
  Sender: FDA-Public Use
  Company Number: HQWYE971010SEP04

PATIENT
  Age: 34 Year
  Sex: Female
  Weight: 53.57 kg

DRUGS (3)
  1. MYLOTARG [Suspect]
     Indication: ACUTE MYELOID LEUKAEMIA
     Dosage: 6.6 MG 1X PER 1 DAY, INTRAVENOUS
     Route: 042
     Dates: start: 20040624, end: 20040624
  2. CYTARABINE [Suspect]
     Indication: ACUTE MYELOID LEUKAEMIA
     Dosage: 735 MG 2X PER 1 DAY, INTRAVENOUS
     Route: 042
     Dates: start: 20040625, end: 20040627
  3. FLUDARABINE PHOSPHATE [Suspect]
     Indication: ACUTE MYELOID LEUKAEMIA
     Dosage: 22 MG 2X PER 1 DAY, INTRAVENOUS
     Route: 042
     Dates: start: 20040625, end: 20040627

REACTIONS (3)
  - NEUTROPENIA [None]
  - PYREXIA [None]
  - THROMBOCYTOPENIA [None]
